FAERS Safety Report 7194574-8 (Version None)
Quarter: 2010Q4

REPORT INFORMATION
  Report Type: 
  Country: None (occurrence: None)
  Receive Date: 20101223
  Receipt Date: 20100915
  Transmission Date: 20110411
  Serious: No
  Sender: FDA-Public Use
  Company Number: US-AMGEN-KDL438506

PATIENT

DRUGS (3)
  1. ENBREL [Suspect]
     Indication: PSORIASIS
     Dosage: 50 MG, 2 TIMES/WK
     Route: 058
     Dates: start: 20100401
  2. ASCORBIC ACID [Concomitant]
     Dosage: UNK UNK, UNK
  3. MULTI-VITAMINS [Concomitant]

REACTIONS (2)
  - BRONCHITIS [None]
  - NASOPHARYNGITIS [None]
